FAERS Safety Report 14845383 (Version 3)
Quarter: 2018Q3

REPORT INFORMATION
  Report Type: Spontaneous
  Country: GB (occurrence: GB)
  Receive Date: 20180504
  Receipt Date: 20180911
  Transmission Date: 20181010
  Serious: Yes (Other)
  Sender: FDA-Public Use
  Company Number: GB-CONCORDIA PHARMACEUTICALS INC.-E2B_00011542

PATIENT
  Age: 17 Year
  Sex: Female

DRUGS (21)
  1. VINBLASTINE [Suspect]
     Active Substance: VINBLASTINE
     Indication: HODGKIN^S DISEASE
     Dosage: 6 MG/M2, CYCLIC (DAY 8, MAX 10 MG, THREE COURSES)
     Route: 065
  2. CHLORAMBUCIL [Suspect]
     Active Substance: CHLORAMBUCIL
     Indication: HODGKIN^S DISEASE STAGE IV
  3. BLEOMYCIN [Suspect]
     Active Substance: BLEOMYCIN SULFATE
     Indication: HODGKIN^S DISEASE
     Dosage: 6 MG/M2, CYCLIC, (DAY 15, THREE COURSES, MAX 10 MG)
     Route: 065
  4. BLEOMYCIN [Suspect]
     Active Substance: BLEOMYCIN SULFATE
     Indication: HODGKIN^S DISEASE
     Dosage: 6 MG/M2 CYCLIC, DAY22 THREE COURSES, MAX 10 MG
     Route: 065
  5. ETOPOSIDE. [Suspect]
     Active Substance: ETOPOSIDE
     Indication: HODGKIN^S DISEASE
     Dosage: 100 MG/M2, 1X/DAY (DAY 1, THREE COURSES)
     Route: 042
  6. PROCARBAZINE [Suspect]
     Active Substance: PROCARBAZINE
     Indication: HODGKIN^S DISEASE
     Dosage: 100 MG/M2, CYCLIC,(DAY1?14, THREE COURSES)
     Route: 065
  7. DOXORUBICIN HYDROCHLORIDE. [Suspect]
     Active Substance: DOXORUBICIN HYDROCHLORIDE
     Indication: HODGKIN^S DISEASE
     Dosage: 25 MG/M2, CYCLIC,(DAY 8,THREE COURSES)
     Route: 065
  8. BLEOMYCIN [Suspect]
     Active Substance: BLEOMYCIN SULFATE
     Indication: HODGKIN^S DISEASE STAGE IV
  9. PREDNISOLONE. [Suspect]
     Active Substance: PREDNISOLONE
     Indication: HODGKIN^S DISEASE
     Dosage: 40 MG, DAILY (DAY 14?28, THREE COURSES)
     Route: 065
  10. ETOPOSIDE. [Suspect]
     Active Substance: ETOPOSIDE
     Indication: HODGKIN^S DISEASE
     Dosage: 100 MG/M2, 1X/DAY (DAY 1, THREE COURSES)
     Route: 048
  11. MELPHALAN. [Suspect]
     Active Substance: MELPHALAN
     Indication: BONE MARROW CONDITIONING REGIMEN
     Dosage: 3 MG/KG
  12. ETOPOSIDE. [Suspect]
     Active Substance: ETOPOSIDE
     Indication: HODGKIN^S DISEASE STAGE IV
     Dosage: 1600 UNK
  13. PREDNISOLONE. [Suspect]
     Active Substance: PREDNISOLONE
     Indication: HODGKIN^S DISEASE STAGE IV
  14. ETOPOSIDE. [Suspect]
     Active Substance: ETOPOSIDE
     Indication: BONE MARROW CONDITIONING REGIMEN
  15. CHLORAMBUCIL [Suspect]
     Active Substance: CHLORAMBUCIL
     Indication: HODGKIN^S DISEASE
     Dosage: 6 MG/M2, CYCLIC, (DAY1?14, MAX 10 MG, THREE COURSES)
     Route: 065
  16. PREDNISONE. [Suspect]
     Active Substance: PREDNISONE
     Indication: HODGKIN^S DISEASE
     Route: 065
  17. PROCARBAZINE [Suspect]
     Active Substance: PROCARBAZINE
     Indication: HODGKIN^S DISEASE STAGE IV
  18. PREDNISONE. [Suspect]
     Active Substance: PREDNISONE
     Indication: HODGKIN^S DISEASE STAGE IV
  19. VINCRISTINE SULFATE. [Suspect]
     Active Substance: VINCRISTINE SULFATE
     Indication: HODGKIN^S DISEASE
     Dosage: 6 MG/M2, CYCLIC, (DAY 15, THREE COURSES, MAX 10 MG), 2 MG, CYCLIC, (DAY 1, THREE COURSES)
     Route: 065
  20. VINCRISTINE SULFATE. [Suspect]
     Active Substance: VINCRISTINE SULFATE
     Indication: HODGKIN^S DISEASE STAGE IV
  21. ADRIAMYCIN [Suspect]
     Active Substance: DOXORUBICIN HYDROCHLORIDE
     Indication: HODGKIN^S DISEASE
     Dosage: 25 MG/M2, CYCLIC,(DAY 8,THREE COURSES)
     Route: 065

REACTIONS (2)
  - Second primary malignancy [Unknown]
  - Chronic myeloid leukaemia [Not Recovered/Not Resolved]
